FAERS Safety Report 5507474-3 (Version None)
Quarter: 2007Q4

REPORT INFORMATION
  Report Type: 
  Country: None (occurrence: None)
  Receive Date: 20071102
  Receipt Date: 20071023
  Transmission Date: 20080405
  Serious: Yes (Other)
  Sender: FDA-Public Use
  Company Number: TUK2007A00121

PATIENT
  Age: 73 Year
  Sex: Male

DRUGS (2)
  1. ACTOS [Suspect]
     Dosage: 15 MG, ORAL
     Route: 048
     Dates: start: 20070913, end: 20070927
  2. ROSIGLITAZONE [Concomitant]

REACTIONS (2)
  - DYSPHAGIA [None]
  - LIP SWELLING [None]
